FAERS Safety Report 8601324-4 (Version None)
Quarter: 2012Q3

REPORT INFORMATION
  Report Type: 
  Country: None (occurrence: None)
  Receive Date: 20120817
  Receipt Date: 20120810
  Transmission Date: 20120928
  Serious: Yes (Other)
  Sender: FDA-Public Use
  Company Number: CA-JNJFOC-20120506602

PATIENT
  Sex: Male
  Weight: 100 kg

DRUGS (2)
  1. REMICADE [Suspect]
     Indication: CROHN'S DISEASE
     Dosage: WEEK 6
     Route: 042
     Dates: start: 20120410
  2. REMICADE [Suspect]
     Dosage: AT 0, 2, 6 AND THEREAFTER ONCE IN 8 WEEKS
     Route: 042
     Dates: start: 20120228

REACTIONS (3)
  - ABDOMINAL PAIN UPPER [None]
  - ABASIA [None]
  - BACK PAIN [None]
